FAERS Safety Report 10955716 (Version 2)
Quarter: 2015Q2

REPORT INFORMATION
  Report Type: Spontaneous
  Country: NL (occurrence: NL)
  Receive Date: 20150326
  Receipt Date: 20150415
  Transmission Date: 20150821
  Serious: Yes (Life-Threatening, Hospitalization)
  Sender: FDA-Public Use
  Company Number: NL-EISAI MEDICAL RESEARCH-EC-2015-005052

PATIENT
  Age: 69 Year
  Sex: Male
  Weight: 75 kg

DRUGS (8)
  1. FYCOMPA [Suspect]
     Active Substance: PERAMPANEL
     Route: 048
     Dates: start: 20141207, end: 20141227
  2. FYCOMPA [Suspect]
     Active Substance: PERAMPANEL
     Route: 048
     Dates: start: 20141228, end: 20150228
  3. LAMICTAL [Suspect]
     Active Substance: LAMOTRIGINE
     Dosage: OVERDOSE
     Dates: start: 20150301, end: 20150301
  4. FYCOMPA [Suspect]
     Active Substance: PERAMPANEL
     Dosage: REDUCED UNKNOWN DOSE
     Route: 048
     Dates: start: 201503
  5. FYCOMPA [Suspect]
     Active Substance: PERAMPANEL
     Indication: EPILEPSY
     Route: 048
     Dates: start: 20141101, end: 20141206
  6. LAMICTAL [Suspect]
     Active Substance: LAMOTRIGINE
     Indication: EPILEPSY
     Dates: start: 20000320, end: 20150228
  7. FYCOMPA [Suspect]
     Active Substance: PERAMPANEL
     Dosage: UNKNOWN-OVERDOSE
     Dates: start: 20150301, end: 20150301
  8. GIN [Suspect]
     Active Substance: ALCOHOL
     Dosage: OVERDOSE
     Route: 065
     Dates: start: 20150301, end: 20150301

REACTIONS (4)
  - Insomnia [Recovered/Resolved with Sequelae]
  - Tinnitus [Recovered/Resolved with Sequelae]
  - Intentional overdose [Recovered/Resolved with Sequelae]
  - Suicide attempt [Recovered/Resolved with Sequelae]

NARRATIVE: CASE EVENT DATE: 20150216
